FAERS Safety Report 7650106-9 (Version None)
Quarter: 2011Q3

REPORT INFORMATION
  Report Type: 
  Country: None (occurrence: None)
  Receive Date: 20110727
  Receipt Date: 20110711
  Transmission Date: 20111222
  Serious: Yes (Hospitalization, Other)
  Sender: FDA-Public Use
  Company Number: 2011MA008672

PATIENT
  Age: 54 Year
  Sex: Male

DRUGS (6)
  1. METOPROLOL TARTRATE [Concomitant]
  2. ESOMEPRAZOLE MAGNESIUM [Concomitant]
  3. DOCUSATE [Concomitant]
  4. TACROLIMUS [Concomitant]
  5. SERTRALINE HYDROCHLORIDE [Suspect]
  6. COTRIM [Concomitant]

REACTIONS (18)
  - MUSCLE CONTRACTIONS INVOLUNTARY [None]
  - BLOOD BILIRUBIN INCREASED [None]
  - LOCALISED INTRAABDOMINAL FLUID COLLECTION [None]
  - POST PROCEDURAL BILE LEAK [None]
  - SEROTONIN SYNDROME [None]
  - CONFUSIONAL STATE [None]
  - ENTEROCOCCUS TEST POSITIVE [None]
  - FALL [None]
  - HALLUCINATION, VISUAL [None]
  - BILIARY TRACT DISORDER [None]
  - LIVER TRANSPLANT [None]
  - BALANCE DISORDER [None]
  - RESTLESSNESS [None]
  - TREMOR [None]
  - ENTEROBACTER TEST POSITIVE [None]
  - AGITATION [None]
  - CANDIDA TEST POSITIVE [None]
  - BACTERIAL INFECTION [None]
